FAERS Safety Report 24140426 (Version 2)
Quarter: 2024Q4

REPORT INFORMATION
  Report Type: Spontaneous
  Country: JP (occurrence: JP)
  Receive Date: 20240726
  Receipt Date: 20241007
  Transmission Date: 20250114
  Serious: Yes (Hospitalization, Other)
  Sender: ROCHE
  Company Number: JP-CHUGAI-2024025028

PATIENT
  Age: 8 Decade
  Sex: Female
  Weight: 48 kg

DRUGS (25)
  1. ENSPRYNG [Suspect]
     Active Substance: SATRALIZUMAB-MWGE
     Indication: Neuromyelitis optica spectrum disorder
     Dosage: UNK
     Route: 050
     Dates: start: 20230705, end: 20230719
  2. ENSPRYNG [Suspect]
     Active Substance: SATRALIZUMAB-MWGE
     Dosage: UNK
     Route: 050
     Dates: start: 20230804
  3. PREDONINE [Concomitant]
     Active Substance: PREDNISOLONE
     Dates: start: 202305
  4. PREDONINE [Concomitant]
     Active Substance: PREDNISOLONE
     Dates: start: 2007
  5. MIROGABALIN BESYLATE [Concomitant]
     Active Substance: MIROGABALIN BESYLATE
  6. DULOXETINE HYDROCHLORIDE [Concomitant]
     Active Substance: DULOXETINE HYDROCHLORIDE
  7. MIZORIBINE [Concomitant]
     Active Substance: MIZORIBINE
  8. METGLUCO [Concomitant]
     Active Substance: METFORMIN HYDROCHLORIDE
     Dates: start: 20230804
  9. DAYVIGO [Concomitant]
     Active Substance: LEMBOREXANT
  10. RAMELTEON [Concomitant]
     Active Substance: RAMELTEON
  11. BROTIZOLAM [Concomitant]
     Active Substance: BROTIZOLAM
  12. TIZANIDINE HYDROCHLORIDE [Concomitant]
     Active Substance: TIZANIDINE HYDROCHLORIDE
  13. ALENDRONATE [Concomitant]
     Active Substance: ALENDRONATE SODIUM
  14. METHYLCOBALAMIN [Concomitant]
     Active Substance: METHYLCOBALAMIN
  15. MEXILETINE HYDROCHLORIDE [Concomitant]
     Active Substance: MEXILETINE HYDROCHLORIDE
  16. MOSAPRIDE CITRATE [Concomitant]
     Active Substance: MOSAPRIDE CITRATE
  17. SULFAMETHOXAZOLE\TRIMETHOPRIM [Concomitant]
     Active Substance: SULFAMETHOXAZOLE\TRIMETHOPRIM
  18. LANSOPRAZOLE [Concomitant]
     Active Substance: LANSOPRAZOLE
  19. ELOBIXIBAT [Concomitant]
     Active Substance: ELOBIXIBAT
  20. URSODIOL [Concomitant]
     Active Substance: URSODIOL
  21. ROSUVASTATIN CALCIUM [Concomitant]
     Active Substance: ROSUVASTATIN CALCIUM
  22. LINAGLIPTIN [Concomitant]
     Active Substance: LINAGLIPTIN
  23. SENNOSIDES A AND B [Concomitant]
     Active Substance: SENNOSIDES A AND B
  24. PEMAFIBRATE [Concomitant]
     Active Substance: PEMAFIBRATE
  25. HERBALS [Concomitant]
     Active Substance: HERBALS

REACTIONS (8)
  - Muscular weakness [Not Recovered/Not Resolved]
  - Back pain [Not Recovered/Not Resolved]
  - Neuromyelitis optica spectrum disorder [Unknown]
  - Lumbar spinal stenosis [Not Recovered/Not Resolved]
  - Steroid diabetes [Unknown]
  - Pyrexia [Recovered/Resolved]
  - Gamma-glutamyltransferase increased [Unknown]
  - COVID-19 [Recovered/Resolved]

NARRATIVE: CASE EVENT DATE: 20230710
